FAERS Safety Report 24045049 (Version 1)
Quarter: 2024Q3

REPORT INFORMATION
  Report Type: Spontaneous
  Country: FR (occurrence: FR)
  Receive Date: 20240703
  Receipt Date: 20240703
  Transmission Date: 20241016
  Serious: Yes (Life-Threatening)
  Sender: PROVEPHARM
  Company Number: FR-Provepharm-2158778

PATIENT
  Age: 50 Year
  Sex: Female

DRUGS (14)
  1. METHYLENE BLUE ANHYDROUS [Suspect]
     Active Substance: METHYLENE BLUE ANHYDROUS
     Indication: Mastectomy
  2. ACETAMINOPHEN [Concomitant]
     Active Substance: ACETAMINOPHEN
  3. SUFENTANIL [Concomitant]
     Active Substance: SUFENTANIL
  4. ROPIVACAINE [Concomitant]
     Active Substance: ROPIVACAINE
  5. XYLOCAINE [Concomitant]
     Active Substance: LIDOCAINE HYDROCHLORIDE\LIDOCAINE HYDROCHLORIDE ANHYDROUS
  6. KETOPROFEN [Concomitant]
     Active Substance: KETOPROFEN
  7. NEFOPAM [Concomitant]
     Active Substance: NEFOPAM
  8. METHYLPREDNISOLONE [Concomitant]
     Active Substance: METHYLPREDNISOLONE
  9. CLONIDINE [Concomitant]
     Active Substance: CLONIDINE
  10. CEFAZOLIN SODIUM [Concomitant]
     Active Substance: CEFAZOLIN SODIUM
  11. DEXAMETHASONE [Concomitant]
     Active Substance: DEXAMETHASONE
  12. PANTOPRAZOLE [Concomitant]
     Active Substance: PANTOPRAZOLE
  13. KETAMINE [Concomitant]
     Active Substance: KETAMINE
  14. PROPOFOL [Concomitant]
     Active Substance: PROPOFOL

REACTIONS (2)
  - Anaphylactic shock [Recovered/Resolved]
  - Product use in unapproved indication [Unknown]

NARRATIVE: CASE EVENT DATE: 20220401
